FAERS Safety Report 8982844 (Version 2)
Quarter: 2013Q1

REPORT INFORMATION
  Report Type: Spontaneous
  Country: US (occurrence: US)
  Receive Date: 20121224
  Receipt Date: 20130125
  Transmission Date: 20140127
  Serious: Yes (Other)
  Sender: FDA-Public Use
  Company Number: US-ELI_LILLY_AND_COMPANY-US201212004933

PATIENT
  Sex: Male

DRUGS (19)
  1. BYETTA [Suspect]
     Dosage: 5 UG, BID
     Route: 058
     Dates: start: 20061016
  2. BYETTA [Suspect]
     Dosage: 5 UG, EACH MORNING
  3. BYETTA [Suspect]
     Dosage: 10 UG, EACH EVENING
  4. BYETTA [Suspect]
     Dosage: 10 UG, BID
  5. NPH INSULIN [Concomitant]
     Dosage: 10 U, EACH MORNING
  6. NPH INSULIN [Concomitant]
     Dosage: 78 U, EACH EVENING
  7. HUMALOG [Concomitant]
  8. ACTOS [Concomitant]
     Dosage: 22.5 MG, QD
  9. METFORMIN [Concomitant]
     Dosage: 500 MG, BID
  10. ZOCOR [Concomitant]
     Dosage: 10 MG, QD
  11. SINGULAIR [Concomitant]
     Dosage: 10 MG, QD
  12. ADVAIR [Concomitant]
     Dosage: UNK, QD
  13. FLUOXETINE [Concomitant]
     Dosage: 20 MG, QD
  14. PRILOSEC [Concomitant]
     Dosage: UNK, QD
  15. SPIRIVA [Concomitant]
  16. ALBUTEROL [Concomitant]
  17. ATENOLOL [Concomitant]
     Dosage: 25 MG, QD
  18. FLOMAX [Concomitant]
     Dosage: 0.4 MG, BID
  19. ASPIRIN [Concomitant]
     Dosage: UNK, QD

REACTIONS (2)
  - Pancreatic carcinoma [Unknown]
  - Pancreatitis [Unknown]
